FAERS Safety Report 4466337-5 (Version None)
Quarter: 2004Q4

REPORT INFORMATION
  Report Type: 
  Country: None (occurrence: None)
  Receive Date: 20041005
  Receipt Date: 20040927
  Transmission Date: 20050328
  Serious: Yes (Life-Threatening)
  Sender: FDA-Public Use
  Company Number: GB-GLAXOSMITHKLINE-B0346452A

PATIENT
  Age: 65 Year
  Sex: Female

DRUGS (4)
  1. CEFUROXIME SODIUM [Suspect]
     Route: 042
     Dates: start: 20040907, end: 20040907
  2. INDOMETHACIN [Concomitant]
     Route: 054
     Dates: start: 20040906, end: 20040906
  3. OMEPRAZOLE [Concomitant]
     Dosage: 20MG PER DAY
     Route: 048
     Dates: start: 20040905
  4. ATENOLOL [Concomitant]
     Indication: HYPERTENSION
     Dosage: 25MG PER DAY
     Route: 048
     Dates: start: 20040905

REACTIONS (7)
  - HYPOTENSION [None]
  - POST PROCEDURAL COMPLICATION [None]
  - RASH [None]
  - TACHYCARDIA [None]
  - TACHYPNOEA [None]
  - URTICARIA [None]
  - WHEEZING [None]
